FAERS Safety Report 20516363 (Version 3)
Quarter: 2022Q3

REPORT INFORMATION
  Report Type: Spontaneous
  Country: FR (occurrence: FR)
  Receive Date: 20220225
  Receipt Date: 20220913
  Transmission Date: 20221026
  Serious: Yes (Hospitalization, Other)
  Sender: FDA-Public Use
  Company Number: FR-AFSSAPS-AVCN20220118

PATIENT
  Age: 27 Year
  Sex: Male

DRUGS (4)
  1. DIAZEPAM [Suspect]
     Active Substance: DIAZEPAM
     Indication: Product used for unknown indication
     Dosage: 150 MILLIGRAM
     Route: 048
     Dates: start: 20210315, end: 20210315
  2. TRAMADOL [Suspect]
     Active Substance: TRAMADOL
     Dosage: UNK (AT LEAST 1G (20 TABLETS AT 50MG))
     Route: 048
     Dates: start: 20210315, end: 20210315
  3. ALCOHOL [Suspect]
     Active Substance: ALCOHOL
     Indication: Product used for unknown indication
     Dosage: UNK (UNSPECIFIED)
     Route: 048
  4. DIAZEPAM [Suspect]
     Active Substance: DIAZEPAM
     Indication: Product used for unknown indication
     Dosage: 150 MILLIGRAM, MICROSPHERES
     Route: 048
     Dates: start: 20210315, end: 20210315

REACTIONS (4)
  - Drug abuse [Not Recovered/Not Resolved]
  - Tachycardia [Recovering/Resolving]
  - Toxicity to various agents [Recovered/Resolved]
  - Overdose [Not Recovered/Not Resolved]

NARRATIVE: CASE EVENT DATE: 20210315
